FAERS Safety Report 5714185-8 (Version None)
Quarter: 2008Q2

REPORT INFORMATION
  Report Type: 
  Country: None (occurrence: None)
  Receive Date: 20080423
  Receipt Date: 20070720
  Transmission Date: 20081010
  Serious: No
  Sender: FDA-Public Use
  Company Number: US-KINGPHARMUSA00001-K200700922

PATIENT

DRUGS (3)
  1. SKELAXIN [Suspect]
     Indication: MYALGIA
     Dosage: 400 MG, SINGLE
     Route: 048
     Dates: start: 20070719, end: 20070719
  2. SKELAXIN [Suspect]
     Indication: ARTHRITIS
     Dosage: 800 MG, QID
     Route: 048
     Dates: start: 20070720
  3. SKELAXIN [Suspect]
     Indication: MUSCLE SPASMS

REACTIONS (1)
  - DRUG INEFFECTIVE [None]
